FAERS Safety Report 8961670 (Version 2)
Quarter: 2014Q2

REPORT INFORMATION
  Report Type: Report from Study
  Country: ES (occurrence: ES)
  Receive Date: 20121213
  Receipt Date: 20131018
  Transmission Date: 20141212
  Serious: Yes (Hospitalization)
  Sender: FDA-Public Use
  Company Number: ES-PFIZER INC-ES-WYE-H09846909

PATIENT
  Age: 57 Year
  Sex: Female
  Weight: 60.7 kg

DRUGS (77)
  1. SIROLIMUS [Suspect]
     Indication: PROPHYLAXIS AGAINST TRANSPLANT REJECTION
     Dosage: 9 MG, 1X/DAY
     Route: 048
     Dates: start: 20030425
  2. SIROLIMUS [Suspect]
     Dosage: 3 MG, 1X/DAY
     Route: 048
     Dates: start: 20030425, end: 20030708
  3. SIROLIMUS [Suspect]
     Dosage: 1 MG, 2X/DAY
     Route: 048
     Dates: start: 20030711, end: 20040629
  4. SIROLIMUS [Suspect]
     Dosage: 1.5 MG, 1X/DAY
     Route: 048
     Dates: start: 20040630
  5. SIROLIMUS [Suspect]
     Dosage: 1 MG, 2X/DAY
     Route: 048
     Dates: start: 20040722, end: 20041104
  6. SIROLIMUS [Suspect]
     Dosage: 1.5 MG, 1X/DAY
     Dates: start: 20041105, end: 20041228
  7. SIROLIMUS [Suspect]
     Dosage: 1 MG, 1X/DAY
     Route: 048
     Dates: start: 20041229, end: 20050725
  8. SIROLIMUS [Suspect]
     Dosage: 1 MG, 2X/DAY
     Route: 048
     Dates: start: 20050726
  9. METHYLPREDNISOLONE SODIUM SUCCINATE [Suspect]
     Indication: PROPHYLAXIS AGAINST TRANSPLANT REJECTION
     Dosage: 250 MG, 1X/DAY
     Route: 042
     Dates: start: 20030425
  10. METHYLPREDNISOLONE SODIUM SUCCINATE [Suspect]
     Dosage: 1 PER 1 MI (125 MG)
     Route: 042
     Dates: start: 20030426, end: 20030427
  11. MYCOPHENOLATE MOFETIL [Suspect]
     Indication: PROPHYLAXIS AGAINST TRANSPLANT REJECTION
     Dosage: FORM: VIALS; INITIAL DOSE OF 1000 MG DAILY AND ADJUSTED DURING THE STUDY
     Route: 042
     Dates: start: 20030425, end: 20030425
  12. MYCOPHENOLATE MOFETIL [Suspect]
     Dosage: FORM: TABLET; 1000 MG, 2X/DAY
     Route: 048
     Dates: start: 20030426
  13. MYCOPHENOLATE MOFETIL [Suspect]
     Dosage: 1750 MG, 1X/DAY
     Route: 048
     Dates: start: 20030529
  14. MYCOPHENOLATE MOFETIL [Suspect]
     Dosage: 1000 MG, 2X/DAY
     Route: 048
     Dates: start: 20030708
  15. MYCOPHENOLATE MOFETIL [Suspect]
     Dosage: 1750 MG, 1X/DAY
     Route: 048
     Dates: start: 20030804
  16. MYCOPHENOLATE MOFETIL [Suspect]
     Dosage: 2 G, 1X/DAY
     Route: 048
     Dates: start: 20030914
  17. MYCOPHENOLATE MOFETIL [Suspect]
     Dosage: 1750 MG, 1X/DAY
     Route: 048
     Dates: start: 20031217
  18. MYCOPHENOLATE MOFETIL [Suspect]
     Dosage: 500 MG, 2X/DAY
     Route: 048
     Dates: start: 20040520
  19. MYCOPHENOLATE MOFETIL [Suspect]
     Dosage: 250 MG, 2X/DAY
     Route: 048
     Dates: start: 20040525
  20. MYCOPHENOLATE MOFETIL [Suspect]
     Dosage: 250 MG, 3X/DAY
     Route: 048
     Dates: start: 20041229
  21. MYCOPHENOLATE MOFETIL [Suspect]
     Dosage: 500 MG, 2X/DAY
     Route: 048
     Dates: start: 20050726
  22. ZENAPAX [Suspect]
     Indication: PROPHYLAXIS AGAINST TRANSPLANT REJECTION
     Dosage: 120 MG ONCE AT BASELINE AND THEN ADJUSTED DURING THE STUDY
     Route: 042
     Dates: start: 20030425
  23. ZENAPAX [Suspect]
     Dosage: FORM: VIALS 60 MG 1 IN 2 WEEKS
     Route: 042
     Dates: start: 20030509
  24. PREDNISONE [Suspect]
     Indication: PROPHYLAXIS AGAINST TRANSPLANT REJECTION
     Dosage: 15 MG, 1X/DAY
     Route: 048
     Dates: start: 20030427, end: 20031113
  25. PREDNISONE [Suspect]
     Dosage: 15 MG 1 IN 11 DAY
     Route: 048
     Dates: start: 20031114
  26. PREDNISONE [Suspect]
     Dosage: 5 MG, 1X/DAY
     Route: 048
     Dates: start: 20031212
  27. ATENOLOL [Concomitant]
     Dosage: 25 MG, 1X/DAY
     Route: 048
     Dates: start: 20030509, end: 20030622
  28. ATENOLOL [Concomitant]
     Dosage: 25 MG, 2X/DAY
     Route: 048
     Dates: start: 20030623, end: 20030625
  29. ATENOLOL [Concomitant]
     Dosage: 25 MG, 2X/DAY
     Route: 048
     Dates: start: 20030627, end: 20030914
  30. ATENOLOL [Concomitant]
     Dosage: 125 MG, 2X/DAY
     Route: 048
     Dates: start: 20030915, end: 20040528
  31. ATENOLOL [Concomitant]
     Dosage: 50 MG, 2X/DAY
     Route: 048
     Dates: start: 20040529
  32. ATENOLOL [Concomitant]
     Dosage: 25 MG, 2X/DAY
     Route: 048
     Dates: start: 20040530
  33. ATENOLOL [Concomitant]
     Dosage: 12.5 MG, 2X/DAY
     Route: 048
     Dates: start: 20040531
  34. ATORVASTATIN [Concomitant]
     Dosage: 40 MG, 1X/DAY TABLETS
     Route: 048
     Dates: start: 20040316, end: 20040717
  35. ATORVASTATIN [Concomitant]
     Dosage: 40 MG, 1X/DAY TABLETS
     Route: 048
     Dates: start: 20040722
  36. ATORVASTATIN [Concomitant]
     Dosage: 20 MG, 1X/DAY CAPSULES
     Route: 048
     Dates: start: 20030515, end: 20030625
  37. CALCITRIOL [Concomitant]
     Dosage: 25 MG, 2X/WEEK
     Route: 048
     Dates: start: 20030526
  38. CALCIUM FOLINATE [Concomitant]
     Dosage: 15 MG, UNK
     Route: 065
     Dates: start: 20030424
  39. CEFIXIME [Concomitant]
     Dosage: 400 MG, 1X/DAY
     Route: 048
     Dates: start: 20030922, end: 20030926
  40. CIPROFLOXACIN [Concomitant]
     Dosage: 500 MG, 2X/DAY
     Route: 048
     Dates: start: 20030503, end: 20030515
  41. CIPROFLOXACIN [Concomitant]
     Dosage: 400 MG, 2X/DAY
     Route: 042
     Dates: start: 20030502, end: 20030502
  42. CLOXACILLIN [Concomitant]
     Dosage: 1 G, 4X/DAY
     Route: 042
     Dates: start: 20030425, end: 20030429
  43. VITAMIN B12 [Concomitant]
     Dosage: UNK
     Route: 048
     Dates: start: 20030424
  44. DARBEPOETIN ALFA [Concomitant]
     Dosage: 60 UG, WEEKLY
     Route: 058
     Dates: start: 20030512
  45. DARBEPOETIN ALFA [Concomitant]
     Dosage: 60 UG, WEEKLY
     Dates: start: 20030512
  46. DARBEPOETIN ALFA [Concomitant]
     Dosage: 80 UG, WEEKLY
     Route: 058
     Dates: start: 20030709, end: 20030807
  47. DARBEPOETIN ALFA [Concomitant]
     Dosage: 60 UG, WEEKLY
     Route: 058
     Dates: start: 20030922, end: 20040315
  48. DARBEPOETIN ALFA [Concomitant]
     Dosage: 80 UG, EVERY 3 WEEKS
     Route: 058
     Dates: start: 20040316, end: 20040519
  49. DARBEPOETIN ALFA [Concomitant]
     Dosage: 60 UG, WEEKLY
     Route: 058
     Dates: start: 20040520, end: 20040715
  50. DARBEPOETIN ALFA [Concomitant]
     Dosage: 80 UG, WEEKLY
     Route: 058
     Dates: start: 20040716, end: 20041105
  51. FOLIC ACID [Concomitant]
     Dosage: UNK
     Route: 048
     Dates: start: 20030602
  52. FUROSEMIDE [Concomitant]
     Dosage: 40 MG, 3X/DAY
     Route: 048
     Dates: start: 20030503
  53. FUROSEMIDE [Concomitant]
     Dosage: 20 MG, 4X/DAY
     Route: 042
     Dates: start: 20030426, end: 20030502
  54. FUROSEMIDE [Concomitant]
     Dosage: 40 MG, 2X/DAY
     Route: 048
     Dates: start: 20030504
  55. FUROSEMIDE [Concomitant]
     Dosage: 20 MG, 1X/DAY
     Route: 048
     Dates: start: 20030512, end: 20030522
  56. FUROSEMIDE [Concomitant]
     Dosage: 60 MG 12 X/DAY (720 MG)
     Route: 042
     Dates: start: 20040427
  57. GENTAMICIN [Concomitant]
     Dosage: 60 MG, 1 IN TOTAL
     Route: 042
     Dates: start: 20030625, end: 20030626
  58. GENTAMICIN [Concomitant]
     Dosage: 60 MG, 2X/DAY
     Route: 042
     Dates: start: 20030627, end: 20030702
  59. IRON [Concomitant]
     Dosage: REPORTED AS IRON 3+ (SUCCINAL CASEINE)
     Dates: start: 20030502, end: 20050525
  60. IRON [Concomitant]
     Dosage: IRON NOS 800 MG, 1X/DAY
     Route: 048
     Dates: start: 20030602
  61. LOPERAMIDE [Concomitant]
     Dosage: 2 MG, 1X/DAY
     Route: 048
     Dates: start: 20031222
  62. LORMETAZEPAM [Concomitant]
     Dosage: 2 MG, 1X/DAY
     Route: 048
     Dates: start: 20030904
  63. LOSARTAN [Concomitant]
     Dosage: 25 MG, 1X/DAY
     Route: 048
     Dates: start: 20030818, end: 20030901
  64. LOSARTAN [Concomitant]
     Dosage: 25 MG, 1X/DAY
     Route: 048
     Dates: start: 20031030
  65. PANTOPRAZOLE [Concomitant]
     Dosage: UNK
     Route: 048
     Dates: start: 20030425
  66. PRAVASTATIN [Concomitant]
     Dosage: 20 MG, 1X/DAY
     Route: 048
     Dates: start: 20030818, end: 20031222
  67. SULFAMETHOXAZOLE/TRIMETHOPRIM [Concomitant]
     Dosage: 800 MG, 1X/DAY
     Route: 048
     Dates: start: 20030428
  68. TORSEMIDE [Concomitant]
     Dosage: 2.5 MG, 1X/DAY
     Route: 048
     Dates: start: 20030721
  69. TORSEMIDE [Concomitant]
     Dosage: 2.5 MG 1 IN 2 DAYS
     Route: 048
     Dates: start: 20030919
  70. TORSEMIDE [Concomitant]
     Dosage: 2.5 MG, 1X/DAY
     Route: 048
     Dates: start: 20030922, end: 20031222
  71. TORSEMIDE [Concomitant]
     Dosage: 5 MG 1 IN 2 DAYS
     Route: 048
     Dates: start: 20040427
  72. TORSEMIDE [Concomitant]
     Dosage: 5 MG, 1X/DAY
     Route: 048
     Dates: start: 20040622
  73. VANCOMYCIN [Concomitant]
     Dosage: 1000 MG, 1 VIAL IN TOTAL
     Route: 042
     Dates: start: 20030625, end: 20030626
  74. VANCOMYCIN [Concomitant]
     Dosage: 450 MG, 2X/DAY
     Route: 042
     Dates: start: 20030627, end: 20030702
  75. VANCOMYCIN [Concomitant]
     Dosage: 1 G IN 72 HR
     Route: 042
     Dates: start: 20040528
  76. VANCOMYCIN [Concomitant]
     Dosage: 1 G, IN TOTAL
     Dates: start: 20040607, end: 20040609
  77. CUROXIM [Concomitant]
     Dosage: 750 MG, 2X/DAY
     Route: 042
     Dates: start: 20030425, end: 20030529

REACTIONS (3)
  - Peritonitis [Recovered/Resolved]
  - Respiratory tract infection [Not Recovered/Not Resolved]
  - Pneumonia streptococcal [Recovered/Resolved]
